FAERS Safety Report 5288187-2 (Version None)
Quarter: 2007Q1

REPORT INFORMATION
  Report Type: 
  Country: None (occurrence: None)
  Receive Date: 20070330
  Receipt Date: 20070320
  Transmission Date: 20070707
  Serious: Yes (Death)
  Sender: FDA-Public Use
  Company Number: GP-07-0002

PATIENT
  Age: 52 Year
  Sex: Male

DRUGS (8)
  1. DIPYRIDAMOLE (UNKNOWN) [Suspect]
     Indication: ARTERIAL THROMBOSIS
     Dosage: 75 MG T.I.D.
  2. CYTOSINE ARABINOSIDE [Suspect]
     Indication: ACUTE MYELOID LEUKAEMIA
     Dosage: 100 MG/M2
  3. IDARUBICIN HCL [Concomitant]
  4. ONDANSETRON [Concomitant]
  5. AMIKACIN [Concomitant]
  6. CEFEPIME [Concomitant]
  7. BENCYCLAN [Concomitant]
  8. DEXTRAN INJ [Concomitant]

REACTIONS (4)
  - BLOOD BILIRUBIN INCREASED [None]
  - HEPATIC FUNCTION ABNORMAL [None]
  - MULTI-ORGAN FAILURE [None]
  - SEPSIS [None]
